FAERS Safety Report 14330716 (Version 1)
Quarter: 2017Q4

REPORT INFORMATION
  Report Type: Spontaneous
  Country: US (occurrence: US)
  Receive Date: 20171228
  Receipt Date: 20171228
  Transmission Date: 20180321
  Serious: No
  Sender: FDA-Public Use
  Company Number: US-SHIRE-US201732883

PATIENT
  Age: 60 Year

DRUGS (1)
  1. XIIDRA [Suspect]
     Active Substance: LIFITEGRAST
     Indication: DRY EYE
     Dosage: 5%, 2X/DAY:BID
     Route: 047
     Dates: start: 201711

REACTIONS (2)
  - Condition aggravated [Unknown]
  - Instillation site pruritus [Unknown]
